FAERS Safety Report 4436478-7 (Version None)
Quarter: 2004Q3

REPORT INFORMATION
  Report Type: 
  Country: None (occurrence: None)
  Receive Date: 20040830
  Receipt Date: 20040517
  Transmission Date: 20050211
  Serious: Yes (Other)
  Sender: FDA-Public Use
  Company Number: US-BRISTOL-MYERS SQUIBB COMPANY-12596086

PATIENT
  Age: 12 Year
  Sex: Male

DRUGS (5)
  1. ABILIFY [Suspect]
     Indication: AFFECTIVE DISORDER
     Dosage: INCREASED FROM 10 MG TO 15 MG THEN D/C
     Route: 048
     Dates: start: 20031120, end: 20040118
  2. ABILIFY [Suspect]
     Indication: ABNORMAL BEHAVIOUR
     Dosage: INCREASED FROM 10 MG TO 15 MG THEN D/C
     Route: 048
     Dates: start: 20031120, end: 20040118
  3. RITALIN [Concomitant]
  4. CONCERTA [Concomitant]
  5. ZOLOFT [Concomitant]

REACTIONS (1)
  - EXTRAPYRAMIDAL DISORDER [None]
